FAERS Safety Report 6388183-8 (Version None)
Quarter: 2009Q4

REPORT INFORMATION
  Report Type: 
  Country: None (occurrence: None)
  Receive Date: 20091005
  Receipt Date: 20090925
  Transmission Date: 20100525
  Serious: Yes (Hospitalization)
  Sender: FDA-Public Use
  Company Number: US-NOVOPROD-292099

PATIENT
  Sex: Male
  Weight: 67.574 kg

DRUGS (6)
  1. NOVOLIN N [Suspect]
     Indication: DIABETES MELLITUS
     Dosage: 18-20 IU, BID
     Route: 058
     Dates: start: 19990101
  2. ASPIRIN [Concomitant]
     Indication: CARDIAC DISORDER
     Dosage: 81 MG, QD
     Route: 048
  3. TOPROL-XL [Concomitant]
     Indication: CARDIAC DISORDER
     Dosage: 50 MG, QD
     Route: 048
  4. ALTACE [Concomitant]
     Indication: CARDIAC DISORDER
     Dosage: 2.5 MG, QD
     Route: 048
  5. LIPITOR [Concomitant]
     Indication: CARDIAC DISORDER
     Dosage: 10 MG, QD
     Route: 048
  6. IBUPROFEN [Concomitant]
     Indication: ANALGESIC THERAPY
     Dosage: UNK, UNK
     Route: 048

REACTIONS (2)
  - CARDIAC DISORDER [None]
  - CAROTID ARTERY OCCLUSION [None]
